FAERS Safety Report 8438062-7 (Version None)
Quarter: 2012Q2

REPORT INFORMATION
  Report Type: 
  Country: None (occurrence: None)
  Receive Date: 20120614
  Receipt Date: 20120606
  Transmission Date: 20120825
  Serious: Yes (Hospitalization)
  Sender: FDA-Public Use
  Company Number: US-JNJFOC-20120604803

PATIENT
  Age: 21 Year
  Sex: Male

DRUGS (6)
  1. LITHIUM [Concomitant]
     Route: 048
  2. CELEXA [Concomitant]
     Route: 048
  3. ZYPREXA [Concomitant]
     Route: 048
  4. INVEGA [Suspect]
     Indication: SCHIZOAFFECTIVE DISORDER
     Route: 048
     Dates: start: 20120401, end: 20120501
  5. TRAZODONE HCL [Concomitant]
     Route: 048
  6. INDERAL [Concomitant]
     Route: 048

REACTIONS (3)
  - HOSPITALISATION [None]
  - DERMATITIS [None]
  - THERAPY CESSATION [None]
